FAERS Safety Report 8474786-3 (Version None)
Quarter: 2012Q2

REPORT INFORMATION
  Report Type: 
  Country: None (occurrence: None)
  Receive Date: 20120621
  Receipt Date: 20120611
  Transmission Date: 20120825
  Serious: Yes (Life-Threatening, Hospitalization)
  Sender: FDA-Public Use
  Company Number: 2012MA007310

PATIENT
  Age: 70 Year
  Sex: Female

DRUGS (19)
  1. PREDNISOLONE [Suspect]
     Dosage: 10 MG;QD;PO
     Route: 048
  2. NAPROXEN [Suspect]
     Dosage: 500 MG;BID;PO
     Route: 048
     Dates: end: 20120513
  3. ENOXAPARIN [Concomitant]
  4. DIAZEPAM [Concomitant]
  5. ATENOLOL [Concomitant]
  6. ACETAMINOPHEN [Concomitant]
  7. OMEPRAZOLE [Concomitant]
  8. VITAMIN B SUBSTANCES [Concomitant]
  9. INFUMORPH [Concomitant]
  10. SERTRALINE HYDROCHLORIDE [Concomitant]
  11. OXYCODONE HCL [Concomitant]
  12. SENNA-MINT WAF [Concomitant]
  13. GABAPENTIN [Concomitant]
  14. METOCLOPRAMIDE [Concomitant]
  15. ALENDRONATE SODIUM [Concomitant]
  16. THIAMINE [Concomitant]
  17. OXYBUTYNIN [Concomitant]
  18. FOLIC ACID [Concomitant]
  19. CALCICHEW D3 [Concomitant]

REACTIONS (6)
  - OESOPHAGEAL ULCER [None]
  - OESOPHAGITIS [None]
  - UPPER GASTROINTESTINAL HAEMORRHAGE [None]
  - GASTRIC ULCER [None]
  - GASTRITIS [None]
  - HAEMATEMESIS [None]
